FAERS Safety Report 6382902-2 (Version None)
Quarter: 2009Q3

REPORT INFORMATION
  Report Type: 
  Country: None (occurrence: None)
  Receive Date: 20090928
  Receipt Date: 20090928
  Transmission Date: 20100115
  Serious: Yes (Hospitalization)
  Sender: FDA-Public Use
  Company Number: None

PATIENT
  Age: 63 Year
  Sex: Male
  Weight: 104.5 kg

DRUGS (1)
  1. MORPHINE [Suspect]
     Dosage: PO
     Route: 048
     Dates: start: 20081124, end: 20081124

REACTIONS (1)
  - HYPOTENSION [None]
